FAERS Safety Report 11722535 (Version 1)
Quarter: 2015Q4

REPORT INFORMATION
  Report Type: Spontaneous
  Country: US (occurrence: None)
  Receive Date: 20151110
  Receipt Date: 20151110
  Transmission Date: 20160304
  Serious: No
  Sender: FDA-Public Use
  Company Number: None

PATIENT
  Sex: Male

DRUGS (3)
  1. POMALYST [Concomitant]
     Active Substance: POMALIDOMIDE
  2. DEXAMETHASONE. [Concomitant]
     Active Substance: DEXAMETHASONE
  3. VELCADE [Suspect]
     Active Substance: BORTEZOMIB
     Indication: PLASMA CELL MYELOMA
     Route: 058

REACTIONS (5)
  - Malaise [None]
  - Dysphagia [None]
  - Candida infection [None]
  - Pneumonia [None]
  - Unevaluable event [None]
